FAERS Safety Report 6850358-9 (Version None)
Quarter: 2010Q3

REPORT INFORMATION
  Report Type: 
  Country: None (occurrence: None)
  Receive Date: 20100716
  Receipt Date: 20080223
  Transmission Date: 20110219
  Serious: Yes (Other)
  Sender: FDA-Public Use
  Company Number: US-PFIZER INC-2007087261

PATIENT
  Sex: Female
  Weight: 62.1 kg

DRUGS (1)
  1. CHANTIX [Suspect]

REACTIONS (4)
  - ERYTHEMA [None]
  - RASH [None]
  - SKIN DISORDER [None]
  - URTICARIA [None]
